FAERS Safety Report 8808504 (Version 2)
Quarter: 2012Q4

REPORT INFORMATION
  Report Type: 
  Country: US (occurrence: US)
  Receive Date: 20120926
  Receipt Date: 20121102
  Transmission Date: 20130627
  Serious: Yes (Hospitalization, Other)
  Sender: FDA-Public Use
  Company Number: US-BAYER-2012-099291

PATIENT
  Age: 47 Year
  Sex: Female

DRUGS (5)
  1. YASMIN [Suspect]
     Dosage: UNK
     Dates: start: 20031120, end: 200511
  2. YAZ [Suspect]
     Dosage: UNK
     Dates: start: 20031120, end: 200511
  3. ANTIBIOTICS [Concomitant]
     Indication: PNEUMONIA
  4. PPI [Concomitant]
  5. FLAGYL [Concomitant]
     Indication: PNEUMONIA

REACTIONS (10)
  - Cholecystectomy [None]
  - Cholecystitis acute [None]
  - Pulmonary embolism [Recovered/Resolved]
  - Pain [None]
  - General physical health deterioration [None]
  - Anxiety [None]
  - Anhedonia [None]
  - Emotional distress [None]
  - Injury [None]
  - Pain [Recovered/Resolved]
